FAERS Safety Report 12595898 (Version 3)
Quarter: 2018Q3

REPORT INFORMATION
  Report Type: Report from Study
  Country: US (occurrence: US)
  Receive Date: 20160726
  Receipt Date: 20180724
  Transmission Date: 20181010
  Serious: No
  Sender: FDA-Public Use
  Company Number: US-AMGEN-USASL2016041964

PATIENT
  Age: 63 Year
  Sex: Male

DRUGS (1)
  1. KYPROLIS [Suspect]
     Active Substance: CARFILZOMIB
     Indication: PLASMA CELL MYELOMA
     Dosage: UNK
     Route: 065

REACTIONS (7)
  - Abdominal pain upper [Unknown]
  - Dyspnoea exertional [Unknown]
  - Asthenia [Recovering/Resolving]
  - Neuropathy peripheral [Unknown]
  - Insomnia [Unknown]
  - Somnolence [Unknown]
  - Diarrhoea [Unknown]
